FAERS Safety Report 4914826-9 (Version None)
Quarter: 2006Q1

REPORT INFORMATION
  Report Type: 
  Country: None (occurrence: None)
  Receive Date: 20060113
  Receipt Date: 20051024
  Transmission Date: 20060701
  Serious: No
  Sender: FDA-Public Use
  Company Number: 2005SP003656

PATIENT
  Age: 74 Year
  Sex: Female
  Weight: 94.3482 kg

DRUGS (3)
  1. LUNESTA [Suspect]
     Indication: INSOMNIA
     Dosage: 2 MG;HS;ORAL ; 3 MG;HS;ORAL
     Route: 048
     Dates: start: 20051001, end: 20051001
  2. LUNESTA [Suspect]
     Indication: INSOMNIA
     Dosage: 2 MG;HS;ORAL ; 3 MG;HS;ORAL
     Route: 048
     Dates: start: 20051012, end: 20051001
  3. SIMVASTATIN [Concomitant]

REACTIONS (2)
  - DRUG INEFFECTIVE [None]
  - INITIAL INSOMNIA [None]
